FAERS Safety Report 5735126-3 (Version None)
Quarter: 2008Q2

REPORT INFORMATION
  Report Type: 
  Country: None (occurrence: None)
  Receive Date: 20080512
  Receipt Date: 20080429
  Transmission Date: 20081010
  Serious: Yes (Hospitalization)
  Sender: FDA-Public Use
  Company Number: PT-ELI_LILLY_AND_COMPANY-PT200805001720

PATIENT
  Sex: Female
  Weight: 64 kg

DRUGS (10)
  1. PLACEBO [Suspect]
     Indication: NON-SMALL CELL LUNG CANCER
     Dosage: UNK, UNKNOWN
     Route: 048
     Dates: start: 20080226, end: 20080310
  2. PEMETREXED [Suspect]
     Indication: NON-SMALL CELL LUNG CANCER
     Dosage: 500 MG/M2, UNKNOWN
     Route: 042
     Dates: start: 20080304
  3. FOLIC ACID [Concomitant]
     Indication: VITAMIN SUPPLEMENTATION
     Dates: start: 20080226
  4. VITAMIN B-12 [Concomitant]
     Indication: VITAMIN SUPPLEMENTATION
     Dates: start: 20080226
  5. DEXAMETHASONE [Concomitant]
     Indication: SUPPLEMENTATION THERAPY
     Dates: start: 20080415, end: 20080417
  6. OMEPRAZOLE [Concomitant]
     Indication: GASTRITIS PROPHYLAXIS
  7. GABAPENTIN [Concomitant]
     Indication: DEPRESSION
     Dates: start: 20080401
  8. RIVOTRIL [Concomitant]
     Indication: DEPRESSION
     Dates: start: 20080401
  9. SERTRALINE [Concomitant]
     Indication: DEPRESSION
     Dates: start: 20060101
  10. ENOXAPARIN SODIUM [Concomitant]
     Indication: ARTERIAL THROMBOSIS
     Dates: start: 20071201

REACTIONS (1)
  - PANNICULITIS [None]
